FAERS Safety Report 8512633-1 (Version None)
Quarter: 2012Q3

REPORT INFORMATION
  Report Type: 
  Country: None (occurrence: None)
  Receive Date: 20120716
  Receipt Date: 20120709
  Transmission Date: 20120928
  Serious: Yes (Other)
  Sender: FDA-Public Use
  Company Number: US-CELGENEUS-163-21880-12070961

PATIENT
  Sex: Female

DRUGS (2)
  1. REVLIMID [Suspect]
     Indication: MULTIPLE MYELOMA
     Dosage: 15 MILLIGRAM
     Route: 048
     Dates: start: 20111212
  2. SYNTHROID [Concomitant]
     Route: 065

REACTIONS (6)
  - DIARRHOEA [None]
  - DYSPHAGIA [None]
  - CHILLS [None]
  - WHITE BLOOD CELL COUNT DECREASED [None]
  - HOT FLUSH [None]
  - NAUSEA [None]
